FAERS Safety Report 16486707 (Version 2)
Quarter: 2019Q3

REPORT INFORMATION
  Report Type: Report from Study
  Country: CO (occurrence: CO)
  Receive Date: 20190627
  Receipt Date: 20190719
  Transmission Date: 20191004
  Serious: Yes (Other)
  Sender: FDA-Public Use
  Company Number: CO-INCYTE CORPORATION-2018IN008617

PATIENT

DRUGS (2)
  1. JAKAVI [Suspect]
     Active Substance: RUXOLITINIB
     Indication: MYELOFIBROSIS
     Dosage: 40 MG, QD
     Route: 048
     Dates: start: 20170913
  2. JAKAVI [Suspect]
     Active Substance: RUXOLITINIB
     Dosage: 1 DF, QD
     Route: 048

REACTIONS (16)
  - Intestinal haemorrhage [Not Recovered/Not Resolved]
  - Pyrexia [Not Recovered/Not Resolved]
  - Peripheral swelling [Unknown]
  - Melaena [Not Recovered/Not Resolved]
  - Inappropriate schedule of product administration [Unknown]
  - Syncope [Unknown]
  - Hallucination [Not Recovered/Not Resolved]
  - Haematemesis [Unknown]
  - Pain in extremity [Unknown]
  - Mental disorder [Unknown]
  - Drug ineffective [Unknown]
  - Haematoma [Unknown]
  - Splenomegaly [Unknown]
  - Malaise [Not Recovered/Not Resolved]
  - General physical health deterioration [Unknown]
  - Haemoglobin decreased [Unknown]
